FAERS Safety Report 11387906 (Version 2)
Quarter: 2015Q3

REPORT INFORMATION
  Report Type: Spontaneous
  Country: JP (occurrence: JP)
  Receive Date: 20150817
  Receipt Date: 20150904
  Transmission Date: 20151125
  Serious: Yes (Hospitalization, Other)
  Sender: FDA-Public Use
  Company Number: JP-PFIZER INC-2015260334

PATIENT
  Age: 71 Year
  Sex: Male

DRUGS (3)
  1. SUTENT [Suspect]
     Active Substance: SUNITINIB MALATE
     Indication: RENAL CANCER
     Dosage: 37.5 MG, DAILY CYCLIC (SCHEDULE 2/1)
     Route: 048
     Dates: start: 20150224
  2. SUTENT [Suspect]
     Active Substance: SUNITINIB MALATE
     Dosage: 25 MG, CYCLIC (DAILY ON SCHEDULE 1/1)
     Route: 048
     Dates: start: 20150712, end: 20150722
  3. SUTENT [Suspect]
     Active Substance: SUNITINIB MALATE
     Dosage: 25 MG DAILY ON SCHEDULE 1/1
     Route: 048
     Dates: start: 20150723, end: 20150726

REACTIONS (11)
  - Hepatic function abnormal [Recovered/Resolved]
  - Cardiac failure [Unknown]
  - Tumour lysis syndrome [Recovered/Resolved]
  - Cardiac failure congestive [Recovered/Resolved]
  - Malaise [Recovered/Resolved]
  - Sepsis [Recovered/Resolved]
  - Epistaxis [Recovered/Resolved]
  - Hepatitis fulminant [Recovered/Resolved]
  - Disseminated intravascular coagulation [Recovered/Resolved]
  - Decreased appetite [Recovered/Resolved]
  - Renal impairment [Recovered/Resolved]

NARRATIVE: CASE EVENT DATE: 20150301
